FAERS Safety Report 9373233 (Version 1)
Quarter: 2013Q2

REPORT INFORMATION
  Report Type: Report from Study
  Country: US (occurrence: US)
  Receive Date: 20130627
  Receipt Date: 20130627
  Transmission Date: 20140414
  Serious: Yes (Hospitalization, Other)
  Sender: FDA-Public Use
  Company Number: US-ABBOTT-13P-163-1108032-00

PATIENT
  Age: 55 Year
  Sex: Male
  Weight: 201.58 kg

DRUGS (12)
  1. HUMIRA [Suspect]
     Indication: PSORIASIS
  2. HUMIRA [Suspect]
     Indication: PSORIATIC ARTHROPATHY
  3. UNSPECIFIED [Suspect]
     Indication: EPISTAXIS
  4. FERROUS SULFATE [Concomitant]
     Indication: PRODUCT USED FOR UNKNOWN INDICATION
  5. METFORMIN [Concomitant]
     Indication: PRODUCT USED FOR UNKNOWN INDICATION
  6. ATENOLOL [Concomitant]
     Indication: PRODUCT USED FOR UNKNOWN INDICATION
  7. LOSARTAN/HCTZ [Concomitant]
     Indication: HYPERTENSION
  8. MELOXICAM [Concomitant]
     Indication: PRODUCT USED FOR UNKNOWN INDICATION
  9. CYCLOBENZAPRINE [Concomitant]
     Indication: ARTHRITIS
  10. MEDICINE [Concomitant]
     Indication: GASTROOESOPHAGEAL REFLUX DISEASE
  11. CREAM [Concomitant]
     Indication: PSORIASIS
  12. EFFEXOR [Concomitant]
     Indication: MENTAL DISORDER

REACTIONS (11)
  - Mental disorder [Recovering/Resolving]
  - Local swelling [Unknown]
  - Pain in extremity [Unknown]
  - Epistaxis [Unknown]
  - Rhinitis [Recovered/Resolved]
  - Dysphonia [Unknown]
  - Weight decreased [Unknown]
  - Renal disorder [Unknown]
  - Gingival infection [Recovered/Resolved]
  - Pharyngitis [Recovered/Resolved]
  - Oropharyngeal discomfort [Unknown]
